FAERS Safety Report 11118682 (Version 1)
Quarter: 2015Q2

REPORT INFORMATION
  Report Type: Spontaneous
  Country: SE (occurrence: SE)
  Receive Date: 20150518
  Receipt Date: 20150518
  Transmission Date: 20150821
  Serious: Yes (Other)
  Sender: FDA-Public Use
  Company Number: SE-TEVA-561950ISR

PATIENT
  Age: 49 Year
  Sex: Female

DRUGS (1)
  1. AMLODIPINE [Suspect]
     Active Substance: AMLODIPINE BESYLATE
     Indication: HYPERTENSION
     Dosage: 5 MILLIGRAM DAILY;
     Route: 048
     Dates: start: 20150419, end: 20150424

REACTIONS (4)
  - Dry mouth [Unknown]
  - Limb discomfort [Unknown]
  - Palpitations [Unknown]
  - Product substitution issue [Unknown]

NARRATIVE: CASE EVENT DATE: 20150419
